FAERS Safety Report 9759553 (Version 1)
Quarter: 2013Q4

REPORT INFORMATION
  Report Type: Spontaneous
  Country: US (occurrence: US)
  Receive Date: 20131216
  Receipt Date: 20131216
  Transmission Date: 20140711
  Serious: No
  Sender: FDA-Public Use
  Company Number: US-GILEAD-2010-0028050

PATIENT
  Sex: Male
  Weight: 96.16 kg

DRUGS (6)
  1. LETAIRIS [Suspect]
     Indication: PULMONARY ARTERIAL HYPERTENSION
     Route: 048
     Dates: start: 20100211
  2. ASPIRIN [Concomitant]
  3. LASIX [Concomitant]
  4. QUINAPRIL [Concomitant]
  5. ISOSORBIDE [Concomitant]
  6. THEOPHYLLIN [Concomitant]

REACTIONS (3)
  - Abdominal distension [Unknown]
  - Abdominal pain [Unknown]
  - Constipation [Unknown]
